FAERS Safety Report 9274960 (Version 1)
Quarter: 2013Q2

REPORT INFORMATION
  Report Type: Spontaneous
  Country: US (occurrence: None)
  Receive Date: 20130501
  Receipt Date: 20130501
  Transmission Date: 20140414
  Serious: Yes (Hospitalization)
  Sender: FDA-Public Use
  Company Number: None

PATIENT
  Age: 62 Year
  Sex: Male
  Weight: 87.9 kg

DRUGS (8)
  1. CARBOPLATIN [Suspect]
     Indication: OESOPHAGEAL CARCINOMA
     Route: 042
     Dates: start: 20130416
  2. TAXOL [Suspect]
     Indication: OESOPHAGEAL CARCINOMA
     Route: 042
     Dates: start: 20130416
  3. LAPATINIB [Concomitant]
  4. LOMOTIL [Concomitant]
  5. LIPITOR [Concomitant]
  6. NORVASC [Concomitant]
  7. BMX [Concomitant]
  8. COMPAZINE [Concomitant]

REACTIONS (1)
  - Febrile neutropenia [None]
